FAERS Safety Report 7266041-4 (Version None)
Quarter: 2011Q1

REPORT INFORMATION
  Report Type: 
  Country: None (occurrence: None)
  Receive Date: 20110131
  Receipt Date: 20110129
  Transmission Date: 20110831
  Serious: No
  Sender: FDA-Public Use
  Company Number: US-PFIZER INC-2011021079

PATIENT
  Sex: Female
  Weight: 74.8 kg

DRUGS (5)
  1. NEURONTIN [Suspect]
     Indication: BURNING SENSATION
  2. COLESTYRAMINE [Concomitant]
     Indication: BLOOD CHOLESTEROL INCREASED
     Dosage: 4 G, 2X/DAY
  3. NEURONTIN [Suspect]
     Indication: PARAESTHESIA
  4. LEVOTHYROXINE [Concomitant]
     Indication: THYROID DISORDER
     Dosage: 0.75 MG, 1X/DAY
     Route: 048
  5. NEURONTIN [Suspect]
     Indication: PAIN IN EXTREMITY
     Dosage: 300 MG, 1X/DAY
     Route: 048
     Dates: start: 20101201, end: 20110128

REACTIONS (6)
  - INSOMNIA [None]
  - CHEST PAIN [None]
  - NECK PAIN [None]
  - FEELING ABNORMAL [None]
  - PANIC ATTACK [None]
  - DIZZINESS [None]
